FAERS Safety Report 5656758-7 (Version None)
Quarter: 2008Q1

REPORT INFORMATION
  Report Type: 
  Country: None (occurrence: None)
  Receive Date: 20080307
  Receipt Date: 20080307
  Transmission Date: 20080703
  Serious: Yes (Hospitalization)
  Sender: FDA-Public Use
  Company Number: None

PATIENT
  Age: 21 Year
  Sex: Female
  Weight: 76.2043 kg

DRUGS (1)
  1. LEVLEN 28 [Suspect]
     Indication: CONTRACEPTION
     Dosage: DAILY PO
     Route: 048
     Dates: start: 20060601, end: 20071212

REACTIONS (1)
  - PULMONARY EMBOLISM [None]
